FAERS Safety Report 25157142 (Version 1)
Quarter: 2025Q2

REPORT INFORMATION
  Report Type: Spontaneous
  Country: IT (occurrence: IT)
  Receive Date: 20250403
  Receipt Date: 20250403
  Transmission Date: 20250716
  Serious: Yes (Hospitalization, Other)
  Sender: TAKEDA
  Company Number: None

PATIENT
  Age: 31 Year
  Sex: Male

DRUGS (7)
  1. BRIGATINIB [Suspect]
     Active Substance: BRIGATINIB
     Indication: Neurofibromatosis
     Dosage: 90 MILLIGRAM, QD
     Dates: start: 20230629
  2. BRIGATINIB [Suspect]
     Active Substance: BRIGATINIB
     Indication: Meningioma
  3. OXCARBAZEPINE [Concomitant]
     Active Substance: OXCARBAZEPINE
     Indication: Epilepsy
  4. KEPPRA [Concomitant]
     Active Substance: LEVETIRACETAM
     Indication: Epilepsy
     Dosage: 1500 MILLIGRAM, BID
  5. LAMICTAL [Concomitant]
     Active Substance: LAMOTRIGINE
     Indication: Epilepsy
     Dosage: 225 MILLIGRAM, BID
  6. ZADITEN [Concomitant]
     Active Substance: KETOTIFEN FUMARATE
  7. FEVARIN [Concomitant]
     Active Substance: FLUVOXAMINE MALEATE
     Indication: Depression

REACTIONS (1)
  - Respiratory failure [Unknown]

NARRATIVE: CASE EVENT DATE: 20250309
